FAERS Safety Report 20134332 (Version 11)
Quarter: 2023Q4

REPORT INFORMATION
  Report Type: Report from Study
  Country: CO (occurrence: CO)
  Receive Date: 20211201
  Receipt Date: 20231111
  Transmission Date: 20240109
  Serious: Yes (Hospitalization)
  Sender: FDA-Public Use
  Company Number: CO-NOVARTISPH-NVSC2021CO272152

PATIENT
  Sex: Female

DRUGS (3)
  1. ELTROMBOPAG OLAMINE [Suspect]
     Active Substance: ELTROMBOPAG OLAMINE
     Indication: Immune thrombocytopenia
     Dosage: 50 MG, QD
     Route: 048
  2. ELTROMBOPAG OLAMINE [Suspect]
     Active Substance: ELTROMBOPAG OLAMINE
     Dosage: 75 MG, QD (3 OF 25 MG)
     Route: 048
  3. ELTROMBOPAG OLAMINE [Suspect]
     Active Substance: ELTROMBOPAG OLAMINE
     Dosage: 75 MG, QD
     Route: 048

REACTIONS (17)
  - Petechiae [Unknown]
  - Contusion [Unknown]
  - Platelet count decreased [Unknown]
  - Haemorrhage [Unknown]
  - Drug ineffective [Unknown]
  - Disease recurrence [Unknown]
  - Epistaxis [Unknown]
  - Influenza like illness [Unknown]
  - Headache [Unknown]
  - Illness [Unknown]
  - Pain [Unknown]
  - Insomnia [Unknown]
  - Malaise [Unknown]
  - Eyelid boil [Unknown]
  - Furuncle [Unknown]
  - Influenza [Unknown]
  - Product supply issue [Unknown]
